FAERS Safety Report 19021126 (Version 1)
Quarter: 2021Q1

REPORT INFORMATION
  Report Type: Spontaneous
  Country: JP (occurrence: JP)
  Receive Date: 20210317
  Receipt Date: 20210317
  Transmission Date: 20210420
  Serious: Yes (Hospitalization)
  Sender: FDA-Public Use
  Company Number: JP-ALLERGAN-2111181US

PATIENT
  Sex: Male

DRUGS (11)
  1. RIVOTRIL [Concomitant]
     Active Substance: CLONAZEPAM
     Dosage: UNK
     Route: 048
     Dates: end: 202011
  2. MIYA?BM [Concomitant]
     Active Substance: CLOSTRIDIUM BUTYRICUM SPORES STRAIN M-55
     Dosage: UNK
     Route: 048
     Dates: end: 202011
  3. SERTRALINE [Concomitant]
     Active Substance: SERTRALINE HYDROCHLORIDE
     Dosage: UNK
     Route: 048
     Dates: end: 202011
  4. TRAZODONE [Concomitant]
     Active Substance: TRAZODONE HYDROCHLORIDE
     Dosage: UNK
     Route: 048
     Dates: end: 202011
  5. SILODOSIN ? BP [Suspect]
     Active Substance: SILODOSIN
     Indication: URINARY RETENTION
     Dosage: 4 MG, BID
     Route: 048
     Dates: end: 20210216
  6. FERROMIA [Concomitant]
     Active Substance: SODIUM FERROUS CITRATE
     Dosage: UNK
     Route: 048
     Dates: end: 202011
  7. SARPOGRELATE HYDROCHLORIDE [Concomitant]
     Active Substance: SARPOGRELATE HYDROCHLORIDE
     Dosage: UNK
     Route: 048
     Dates: end: 202011
  8. ZALUTIA [Concomitant]
     Active Substance: TADALAFIL
     Indication: URINARY RETENTION
     Dosage: UNK
     Route: 048
     Dates: end: 20210211
  9. ALLOPURINOL. [Concomitant]
     Active Substance: ALLOPURINOL
     Dosage: UNK
     Route: 048
     Dates: end: 202011
  10. BISOPROLOL [Concomitant]
     Active Substance: BISOPROLOL
     Dosage: UNK
     Route: 048
     Dates: end: 202011
  11. LANSOPRAZOLE. [Concomitant]
     Active Substance: LANSOPRAZOLE
     Dosage: UNK
     Route: 048
     Dates: end: 202011

REACTIONS (2)
  - Liver disorder [Recovering/Resolving]
  - Platelet count decreased [Not Recovered/Not Resolved]
